FAERS Safety Report 12583471 (Version 1)
Quarter: 2016Q3

REPORT INFORMATION
  Report Type: Spontaneous
  Country: US (occurrence: US)
  Receive Date: 20160722
  Receipt Date: 20160722
  Transmission Date: 20161109
  Serious: Yes (Hospitalization)
  Sender: FDA-Public Use
  Company Number: US-B.I. PHARMACEUTICALS,INC./RIDGEFIELD-2016-BI-47154BP

PATIENT
  Sex: Female

DRUGS (1)
  1. SPIRIVA [Suspect]
     Active Substance: TIOTROPIUM BROMIDE MONOHYDRATE
     Indication: CHRONIC OBSTRUCTIVE PULMONARY DISEASE
     Dosage: 18 MCG
     Route: 055
     Dates: start: 2004

REACTIONS (10)
  - Influenza [Unknown]
  - Irregular breathing [Not Recovered/Not Resolved]
  - Rheumatoid arthritis [Unknown]
  - Dyspnoea [Unknown]
  - Osteoarthritis [Unknown]
  - Confusional state [Unknown]
  - Irregular breathing [Unknown]
  - Pulmonary mass [Not Recovered/Not Resolved]
  - Arthritis [Not Recovered/Not Resolved]
  - Irregular breathing [Unknown]

NARRATIVE: CASE EVENT DATE: 2004
